FAERS Safety Report 8363465-9 (Version None)
Quarter: 2012Q2

REPORT INFORMATION
  Report Type: 
  Country: None (occurrence: None)
  Receive Date: 20120516
  Receipt Date: 20120504
  Transmission Date: 20120825
  Serious: Yes (Life-Threatening, Hospitalization)
  Sender: FDA-Public Use
  Company Number: FR-JNJFOC-20120510194

PATIENT
  Sex: Male

DRUGS (9)
  1. METHADONE HCL [Suspect]
     Indication: DRUG DEPENDENCE
     Route: 048
     Dates: start: 20110301
  2. CACIT NOS [Concomitant]
     Indication: CALCIUM DEFICIENCY
     Route: 065
     Dates: start: 20111021
  3. VFEND [Suspect]
     Indication: MENINGITIS CANDIDA
     Route: 048
     Dates: start: 20111021
  4. TRIMEPRAZINE TARTRATE [Concomitant]
     Route: 065
     Dates: start: 20110101
  5. ATARAX [Concomitant]
     Indication: HYPOKALAEMIA
     Route: 065
     Dates: start: 20110101
  6. PREDNISONE TAB [Concomitant]
     Route: 065
     Dates: start: 20111010
  7. IMOVANE [Concomitant]
     Indication: INSOMNIA
     Route: 065
     Dates: start: 20111021
  8. ACETAMINOPHEN AND TRAMADOL HCL [Suspect]
     Indication: PAIN
     Route: 048
     Dates: start: 20110816
  9. POTASSIUM CHLORIDE [Concomitant]
     Indication: HYPOKALAEMIA
     Route: 065
     Dates: start: 20111021

REACTIONS (3)
  - PYREXIA [None]
  - ESCHERICHIA SEPSIS [None]
  - CHOLECYSTITIS [None]
